FAERS Safety Report 5014984-4 (Version None)
Quarter: 2006Q2

REPORT INFORMATION
  Report Type: 
  Country: None (occurrence: None)
  Receive Date: 20060426
  Receipt Date: 20060213
  Transmission Date: 20061013
  Serious: No
  Sender: FDA-Public Use
  Company Number: US168609

PATIENT
  Age: 73 Year
  Sex: Female
  Weight: 74.9 kg

DRUGS (1)
  1. SENSIPAR [Suspect]
     Indication: HYPERPARATHYROIDISM
     Dosage: 30 MG, 2 IN 1 DAYS, PO
     Route: 048
     Dates: start: 20060122

REACTIONS (7)
  - FORMICATION [None]
  - HEADACHE [None]
  - HOT FLUSH [None]
  - HYPOAESTHESIA [None]
  - NAUSEA [None]
  - PRURITUS [None]
  - VISION BLURRED [None]
